FAERS Safety Report 20472514 (Version 1)
Quarter: 2022Q1

REPORT INFORMATION
  Report Type: Spontaneous
  Country: JP (occurrence: JP)
  Receive Date: 20220215
  Receipt Date: 20220215
  Transmission Date: 20220423
  Serious: Yes (Hospitalization)
  Sender: FDA-Public Use
  Company Number: JP-MTPC-MTPC2022-0003626

PATIENT
  Age: 84 Year
  Sex: Female

DRUGS (2)
  1. EDARAVONE [Suspect]
     Active Substance: EDARAVONE
     Indication: Lacunar infarction
     Dosage: 30 MILLIGRAM, BID
     Route: 065
  2. RIVAROXABAN [Concomitant]
     Active Substance: RIVAROXABAN
     Indication: Lacunar infarction
     Dosage: 10 MILLIGRAM, QD
     Route: 065

REACTIONS (3)
  - Small intestinal haemorrhage [Unknown]
  - Small intestine carcinoma [Unknown]
  - Disseminated intravascular coagulation [Recovering/Resolving]
